FAERS Safety Report 6633041-4 (Version None)
Quarter: 2010Q1

REPORT INFORMATION
  Report Type: 
  Country: None (occurrence: None)
  Receive Date: 20100312
  Receipt Date: 20100301
  Transmission Date: 20100710
  Serious: Yes (Other)
  Sender: FDA-Public Use
  Company Number: PHHY2010US12770

PATIENT
  Sex: Female

DRUGS (2)
  1. GLEEVEC [Suspect]
     Dosage: 200 MG, BID
     Dates: start: 20091101
  2. GLEEVEC [Suspect]
     Dosage: UNK
     Dates: start: 20091201

REACTIONS (5)
  - FATIGUE [None]
  - RASH [None]
  - RASH PUSTULAR [None]
  - REGURGITATION [None]
  - TRANSIENT ACANTHOLYTIC DERMATOSIS [None]
